FAERS Safety Report 16679086 (Version 1)
Quarter: 2019Q3

REPORT INFORMATION
  Report Type: Spontaneous
  Country: US (occurrence: US)
  Receive Date: 20190807
  Receipt Date: 20190807
  Transmission Date: 20191004
  Serious: No
  Sender: FDA-Public Use
  Company Number: US-TEVA-2019-US-1088133

PATIENT
  Sex: Male

DRUGS (2)
  1. CLONAZEPAM ACTAVIS [Suspect]
     Active Substance: CLONAZEPAM
     Indication: NEUROPATHY PERIPHERAL
     Dates: start: 201907
  2. CLONAZEPAM ACTAVIS [Suspect]
     Active Substance: CLONAZEPAM
     Indication: ANXIETY

REACTIONS (5)
  - Nipple enlargement [Unknown]
  - Product substitution issue [Unknown]
  - Therapeutic product effect incomplete [Unknown]
  - Product use in unapproved indication [Unknown]
  - Sensitive skin [Unknown]

NARRATIVE: CASE EVENT DATE: 20190705
